FAERS Safety Report 9329831 (Version 1)
Quarter: 2013Q2

REPORT INFORMATION
  Report Type: Spontaneous
  Country: CA (occurrence: CA)
  Receive Date: 20130604
  Receipt Date: 20130604
  Transmission Date: 20140414
  Serious: Yes (Hospitalization)
  Sender: FDA-Public Use
  Company Number: CA-TEVA-409781USA

PATIENT
  Sex: Male

DRUGS (3)
  1. CITALOPRAM [Suspect]
     Dosage: 20 MILLIGRAM DAILY;
     Route: 048
  2. MELOXICAM [Concomitant]
  3. SALBUTAMOL [Concomitant]
     Dosage: INHALATION

REACTIONS (2)
  - Condition aggravated [Unknown]
  - Depression [Unknown]
